FAERS Safety Report 24632459 (Version 1)
Quarter: 2024Q4

REPORT INFORMATION
  Report Type: Spontaneous
  Country: GB (occurrence: GB)
  Receive Date: 20241118
  Receipt Date: 20241118
  Transmission Date: 20250114
  Serious: Yes (Hospitalization, Other)
  Sender: MYLAN
  Company Number: GB-MYLANLABS-2024M1099122

PATIENT
  Sex: Male

DRUGS (6)
  1. CLOZARIL [Suspect]
     Active Substance: CLOZAPINE
     Indication: Schizophrenia
     Dosage: UNK
     Route: 048
     Dates: start: 20211007
  2. CLOZARIL [Suspect]
     Active Substance: CLOZAPINE
     Dosage: 150 MILLIGRAM, BID (TWICE A DAY)
     Route: 048
     Dates: start: 20211010
  3. VALPROATE SODIUM [Concomitant]
     Active Substance: VALPROATE SODIUM
     Dosage: 2500 MILLIGRAM, PM (AT NIGHT)
     Route: 065
  4. VALPROATE SODIUM [Concomitant]
     Active Substance: VALPROATE SODIUM
     Dosage: 30 MILLILITER, BID (TWICE A DAY)
     Route: 065
     Dates: start: 202109
  5. VALPROATE SODIUM [Concomitant]
     Active Substance: VALPROATE SODIUM
     Dosage: 20 MILLILITER, BID (TWICE A DAY)
     Route: 065
     Dates: start: 20211022
  6. PROCYCLIDINE [Concomitant]
     Active Substance: PROCYCLIDINE
     Dosage: 10 MILLIGRAM, BID (TWICE A DAY)
     Route: 065

REACTIONS (5)
  - Hospitalisation [Recovered/Resolved]
  - Neutropenia [Recovered/Resolved]
  - Treatment noncompliance [Unknown]
  - Laboratory test abnormal [Unknown]
  - Off label use [Unknown]
